FAERS Safety Report 9882731 (Version 3)
Quarter: 2014Q2

REPORT INFORMATION
  Report Type: Report from Study
  Country: US (occurrence: US)
  Receive Date: 20140207
  Receipt Date: 20140416
  Transmission Date: 20141212
  Serious: Yes (Other)
  Sender: FDA-Public Use
  Company Number: US-ABBVIE-14P-163-1197137-00

PATIENT
  Sex: Female
  Weight: 88.53 kg

DRUGS (9)
  1. LUPRON DEPOT [Suspect]
     Indication: ENDOMETRIOSIS
     Dates: start: 2000, end: 200005
  2. LUPRON DEPOT [Suspect]
     Dates: start: 2003, end: 2003
  3. LUPRON DEPOT [Suspect]
     Dates: start: 200410, end: 200410
  4. ALLEGRA [Concomitant]
     Indication: PRODUCT USED FOR UNKNOWN INDICATION
  5. ORAL CONTRACEPTIVE NOS [Concomitant]
     Indication: IN VITRO FERTILISATION
     Dates: start: 2005, end: 2005
  6. SYNTHROID [Concomitant]
     Indication: HYPOTHYROIDISM
     Dates: start: 20070508, end: 20090810
  7. SYNTHROID [Concomitant]
     Dates: start: 20090810
  8. SYNTHROID [Concomitant]
  9. LUPRON DEPOT-3 MONTH [Concomitant]
     Indication: ENDOMETRIOSIS
     Dates: start: 20140222, end: 20140222

REACTIONS (15)
  - Uterine leiomyoma [Recovering/Resolving]
  - Endometriosis [Not Recovered/Not Resolved]
  - Hot flush [Recovered/Resolved]
  - Mood altered [Recovered/Resolved]
  - Vaginal haemorrhage [Recovered/Resolved]
  - Pelvic pain [Recovered/Resolved]
  - Pelvic adhesions [Not Recovered/Not Resolved]
  - Uterine leiomyoma [Not Recovered/Not Resolved]
  - Scar [Not Recovered/Not Resolved]
  - Uterine haemorrhage [Not Recovered/Not Resolved]
  - Retained placenta or membranes [Recovered/Resolved]
  - Uterine polyp [Not Recovered/Not Resolved]
  - Scar [Not Recovered/Not Resolved]
  - In vitro fertilisation [Recovered/Resolved]
  - In vitro fertilisation [Recovered/Resolved]
